FAERS Safety Report 11635002 (Version 1)
Quarter: 2015Q4

REPORT INFORMATION
  Report Type: Spontaneous
  Country: US (occurrence: US)
  Receive Date: 20151015
  Receipt Date: 20151015
  Transmission Date: 20160304
  Serious: No
  Sender: FDA-Public Use
  Company Number: US-SA-2014SA177125

PATIENT
  Age: 10 Year
  Sex: Male
  Weight: 38.1 kg

DRUGS (7)
  1. MIRALAX [Concomitant]
     Active Substance: POLYETHYLENE GLYCOL 3350
     Indication: CONSTIPATION
     Dosage: DOSE: 1 CAPFUL, ROUTE: VT
     Dates: start: 20141027
  2. LUMIZYME [Suspect]
     Active Substance: ALGLUCOSIDASE ALFA
     Route: 042
     Dates: start: 20141007
  3. VITAMIN D3 [Concomitant]
     Active Substance: CHOLECALCIFEROL
     Indication: VITAMIN D DECREASED
     Dosage: ROUTE: VT DOSE:2 TEASPOON(S)
     Dates: start: 201409
  4. CETIRIZINE [Concomitant]
     Active Substance: CETIRIZINE HYDROCHLORIDE
     Indication: URTICARIA
     Dosage: ROUTE: VT
     Dates: start: 20130223
  5. HYDROXYZINE [Concomitant]
     Active Substance: HYDROXYZINE\HYDROXYZINE HYDROCHLORIDE
     Indication: URTICARIA
     Dosage: ROUTE: VT
     Dates: start: 20140219
  6. FLUTICASONE [Concomitant]
     Active Substance: FLUTICASONE\FLUTICASONE PROPIONATE
     Indication: ASTHMA
     Dosage: ROUTE: VT DOSE:2 PUFF(S)
     Dates: start: 20080904
  7. LAMOTRIGINE. [Concomitant]
     Active Substance: LAMOTRIGINE
     Indication: ATTENTION DEFICIT/HYPERACTIVITY DISORDER
     Dosage: DOSE: 25-50 MG, ROUTE: VT
     Dates: start: 20140227

REACTIONS (4)
  - Otitis externa fungal [Not Recovered/Not Resolved]
  - Hypoacusis [Unknown]
  - Otorrhoea [Unknown]
  - Ear pain [Unknown]

NARRATIVE: CASE EVENT DATE: 20141029
